FAERS Safety Report 5055174-9 (Version None)
Quarter: 2006Q3

REPORT INFORMATION
  Report Type: 
  Country: None (occurrence: None)
  Receive Date: 20060719
  Receipt Date: 20060614
  Transmission Date: 20061208
  Serious: Yes (Other)
  Sender: FDA-Public Use
  Company Number: GB-ROCHE-452564

PATIENT
  Age: 68 Year
  Sex: Female
  Weight: 117.5 kg

DRUGS (1)
  1. BONIVA [Suspect]
     Indication: OSTEOPOROSIS
     Route: 048
     Dates: start: 20060501, end: 20060502

REACTIONS (2)
  - DYSPNOEA [None]
  - EATING DISORDER [None]
